FAERS Safety Report 18246638 (Version 1)
Quarter: 2020Q3

REPORT INFORMATION
  Report Type: Spontaneous
  Country: FI (occurrence: FI)
  Receive Date: 20200909
  Receipt Date: 20200909
  Transmission Date: 20201103
  Serious: Yes (Other)
  Sender: FDA-Public Use
  Company Number: FI-BAYER-2020-185454

PATIENT
  Age: 30 Year
  Sex: Female

DRUGS (1)
  1. KYLEENA [Suspect]
     Active Substance: LEVONORGESTREL
     Dosage: 17.5 ?G PER DAY, CONTINUOUSLY
     Route: 015
     Dates: start: 202005, end: 20200828

REACTIONS (4)
  - Drug ineffective [None]
  - Ectopic pregnancy with contraceptive device [Recovered/Resolved]
  - Ruptured ectopic pregnancy [Recovered/Resolved]
  - Haemoperitoneum [Recovered/Resolved]

NARRATIVE: CASE EVENT DATE: 20200828
